FAERS Safety Report 8279519-1 (Version None)
Quarter: 2012Q2

REPORT INFORMATION
  Report Type: 
  Country: None (occurrence: None)
  Receive Date: 20120412
  Receipt Date: 20110829
  Transmission Date: 20120825
  Serious: No
  Sender: FDA-Public Use
  Company Number: US-ASTRAZENECA-2011SE52095

PATIENT
  Sex: Male

DRUGS (2)
  1. NEXIUM [Suspect]
     Indication: GASTROOESOPHAGEAL REFLUX DISEASE
     Route: 048
  2. CRESTOR [Suspect]
     Indication: HYPERLIPIDAEMIA
     Route: 048

REACTIONS (5)
  - ERECTILE DYSFUNCTION [None]
  - PRURITUS [None]
  - GASTROOESOPHAGEAL REFLUX DISEASE [None]
  - SKIN REACTION [None]
  - ERYTHEMA [None]
